FAERS Safety Report 25655623 (Version 1)
Quarter: 2025Q3

REPORT INFORMATION
  Report Type: Spontaneous
  Country: SA (occurrence: SA)
  Receive Date: 20250807
  Receipt Date: 20250807
  Transmission Date: 20251020
  Serious: Yes (Hospitalization)
  Sender: BIOGEN
  Company Number: SA-BIOGEN-2025BI01319335

PATIENT
  Age: 16 Year
  Sex: Male

DRUGS (1)
  1. SPINRAZA [Suspect]
     Active Substance: NUSINERSEN
     Indication: Spinal muscular atrophy
     Route: 050

REACTIONS (4)
  - Procedural nausea [Recovered/Resolved]
  - Procedural pain [Recovered/Resolved]
  - Procedural vomiting [Recovered/Resolved]
  - Post lumbar puncture syndrome [Recovered/Resolved]
